FAERS Safety Report 4675004-4 (Version None)
Quarter: 2005Q2

REPORT INFORMATION
  Report Type: 
  Country: None (occurrence: None)
  Receive Date: 20050525
  Receipt Date: 20050512
  Transmission Date: 20051028
  Serious: Yes (Other)
  Sender: FDA-Public Use
  Company Number: 2005074962

PATIENT
  Age: 45 Year
  Sex: Male
  Weight: 83.9154 kg

DRUGS (2)
  1. BENADRYL [Suspect]
     Indication: HYPERSENSITIVITY
     Dosage: 2 ULTRATABS ONCE A DAY, ORAL
     Route: 048
     Dates: start: 19850101
  2. BENADRYL [Suspect]
     Indication: HYPERSENSITIVITY
     Dosage: 2 KAPSEALS ONCE A DAY, ORAL
     Route: 048
     Dates: start: 19850101

REACTIONS (2)
  - EJACULATION FAILURE [None]
  - TREMOR [None]
